FAERS Safety Report 24136584 (Version 2)
Quarter: 2024Q3

REPORT INFORMATION
  Report Type: Spontaneous
  Country: JP (occurrence: JP)
  Receive Date: 20240725
  Receipt Date: 20240905
  Transmission Date: 20241017
  Serious: Yes (Other)
  Sender: PFIZER
  Company Number: JP-PFIZER INC-PV202400096752

PATIENT
  Age: 68 Year
  Sex: Male

DRUGS (7)
  1. LORBRENA [Suspect]
     Active Substance: LORLATINIB
     Dosage: 100 MG, 1X/DAY
     Route: 048
     Dates: start: 20240702
  2. URSODEOXYCHOL ACID [Concomitant]
     Dosage: UNK
  3. TOPIROXOSTAT [Concomitant]
     Active Substance: TOPIROXOSTAT
     Dosage: UNK
  4. URALYT U [POTASSIUM CITRATE;SODIUM CITRATE DIHYDRATE] [Concomitant]
     Dosage: UNK
  5. DOTINURAD [Concomitant]
     Active Substance: DOTINURAD
     Dosage: UNK
  6. ADETPHOS [Concomitant]
     Active Substance: ADENOSINE TRIPHOSPHATE
     Dosage: UNK
  7. VITAMIN B [Concomitant]
     Active Substance: VITAMIN B
     Dosage: UNK

REACTIONS (2)
  - Hallucination, auditory [Not Recovered/Not Resolved]
  - Neoplasm progression [Recovered/Resolved]

NARRATIVE: CASE EVENT DATE: 20240701
